FAERS Safety Report 9196005 (Version 2)
Quarter: 2013Q2

REPORT INFORMATION
  Report Type: Spontaneous
  Country: US (occurrence: US)
  Receive Date: 20130328
  Receipt Date: 20130411
  Transmission Date: 20140414
  Serious: Yes (Death)
  Sender: FDA-Public Use
  Company Number: PHEH2013US006978

PATIENT
  Age: 63 Year
  Sex: Female

DRUGS (1)
  1. DIOVAN [Suspect]

REACTIONS (1)
  - Death [Fatal]
